FAERS Safety Report 4796295-5 (Version None)
Quarter: 2005Q4

REPORT INFORMATION
  Report Type: 
  Country: None (occurrence: None)
  Receive Date: 20051007
  Receipt Date: 20050930
  Transmission Date: 20060501
  Serious: Yes (Hospitalization, Other)
  Sender: FDA-Public Use
  Company Number: KII-2005-0018870

PATIENT
  Age: 73 Year
  Sex: Male

DRUGS (6)
  1. OXYCONTIN [Suspect]
     Indication: LUNG NEOPLASM MALIGNANT
     Dosage: ORAL
     Route: 048
  2. BENZODIAZEPINE DERIVATIVES [Concomitant]
  3. GLYCOLAX (PREDNISONE) [Concomitant]
  4. PREDNISONE (PREDSNISONE) [Concomitant]
  5. DIOVAN [Concomitant]
  6. UROXATRAL [Concomitant]

REACTIONS (11)
  - BODY TEMPERATURE INCREASED [None]
  - CATATONIA [None]
  - CONFUSIONAL STATE [None]
  - DEPRESSED LEVEL OF CONSCIOUSNESS [None]
  - GASTROINTESTINAL HAEMORRHAGE [None]
  - HEART RATE INCREASED [None]
  - MIOSIS [None]
  - OVERDOSE [None]
  - PNEUMONIA [None]
  - RESPIRATORY RATE DECREASED [None]
  - RESPIRATORY RATE INCREASED [None]
